FAERS Safety Report 18576523 (Version 1)
Quarter: 2020Q4

REPORT INFORMATION
  Report Type: Spontaneous
  Country: US (occurrence: US)
  Receive Date: 20201203
  Receipt Date: 20201203
  Transmission Date: 20210114
  Serious: No
  Sender: FDA-Public Use
  Company Number: US-SA-2020SA347042

PATIENT

DRUGS (1)
  1. ADLYXIN [Suspect]
     Active Substance: LIXISENATIDE
     Dosage: UNK
     Route: 065
     Dates: start: 20170712

REACTIONS (1)
  - Injection site rash [Not Recovered/Not Resolved]

NARRATIVE: CASE EVENT DATE: 20170715
